FAERS Safety Report 5169303-X (Version None)
Quarter: 2006Q4

REPORT INFORMATION
  Report Type: 
  Country: None (occurrence: None)
  Receive Date: 20061201
  Receipt Date: 20061121
  Transmission Date: 20070319
  Serious: Yes (Hospitalization)
  Sender: FDA-Public Use
  Company Number: 2006SP006916

PATIENT
  Age: 62 Year
  Sex: Male

DRUGS (6)
  1. BETAMETHASONE [Suspect]
     Indication: COSTOCHONDRITIS
     Dosage: 5.7 MG; ONCE; IA
     Route: 014
  2. BUPIVACAINE [Suspect]
     Indication: COSTOCHONDRITIS
     Dosage: 10 ML; ONCE; IA
     Route: 014
  3. TRANDOLAPRIL (CON.) [Concomitant]
  4. ATENOLOL (CON.) [Concomitant]
  5. WARFARIN (CON.) [Concomitant]
  6. ERYTHROMYCIN (CON.) [Concomitant]

REACTIONS (8)
  - ASTHENIA [None]
  - COORDINATION ABNORMAL [None]
  - DYSARTHRIA [None]
  - HYPERCALCAEMIA [None]
  - HYPERGLYCAEMIA [None]
  - HYPOMAGNESAEMIA [None]
  - HYPOPHOSPHATAEMIA [None]
  - PARAESTHESIA [None]
